FAERS Safety Report 8905921 (Version 1)
Quarter: 2012Q4

REPORT INFORMATION
  Report Type: 
  Country: US (occurrence: US)
  Receive Date: 20121109
  Receipt Date: 20121109
  Transmission Date: 20130627
  Serious: Yes (Hospitalization)
  Sender: FDA-Public Use
  Company Number: US-GLAXOSMITHKLINE-A0775463A

PATIENT
  Age: 29 Year
  Sex: Female

DRUGS (4)
  1. AVANDIA [Suspect]
     Indication: DIABETES MELLITUS
     Dosage: 8MG Twice per day
     Route: 048
     Dates: start: 1999, end: 2005
  2. LASIX [Concomitant]
  3. ATENOLOL [Concomitant]
  4. NPH INSULIN [Concomitant]

REACTIONS (3)
  - Myocardial infarction [Unknown]
  - Cardiac failure congestive [Unknown]
  - Pain in extremity [Unknown]
